FAERS Safety Report 15378464 (Version 3)
Quarter: 2018Q4

REPORT INFORMATION
  Report Type: Report from Study
  Country: US (occurrence: US)
  Receive Date: 20180913
  Receipt Date: 20181005
  Transmission Date: 20190204
  Serious: Yes (Other)
  Sender: FDA-Public Use
  Company Number: US-TEVA-2018-US-952894

PATIENT
  Age: 63 Year
  Sex: Female

DRUGS (1)
  1. COPAXONE [Suspect]
     Active Substance: GLATIRAMER ACETATE
     Indication: MULTIPLE SCLEROSIS
     Route: 058
     Dates: start: 20180324, end: 20180830

REACTIONS (11)
  - Gait disturbance [Unknown]
  - Injection site reaction [Not Recovered/Not Resolved]
  - Confusional state [Unknown]
  - Pain [Unknown]
  - Depression [Unknown]
  - Injection site necrosis [Not Recovered/Not Resolved]
  - Wound drainage [Not Recovered/Not Resolved]
  - Hypoaesthesia [Unknown]
  - Body temperature fluctuation [Unknown]
  - Haematoma [Unknown]
  - Injection site pain [Unknown]

NARRATIVE: CASE EVENT DATE: 201808
